FAERS Safety Report 22357435 (Version 6)
Quarter: 2023Q4

REPORT INFORMATION
  Report Type: Spontaneous
  Country: DE (occurrence: DE)
  Receive Date: 20230524
  Receipt Date: 20231110
  Transmission Date: 20240109
  Serious: Yes (Other)
  Sender: FDA-Public Use
  Company Number: DE-009507513-2304DEU001536

PATIENT

DRUGS (5)
  1. PEMETREXED [Suspect]
     Active Substance: PEMETREXED
     Indication: Lung neoplasm malignant
     Dosage: 500 MILLIGRAM/SQ. METER (1000 MG) (ONCE IN 3 WEEKS)
     Route: 065
     Dates: start: 20230207
  2. CARBOPLATIN [Suspect]
     Active Substance: CARBOPLATIN
     Indication: Lung neoplasm malignant
     Dosage: 620 MILLIGRAM (ONCE IN 3 WEEKS)
     Route: 065
     Dates: start: 20230207, end: 20230412
  3. CARBOPLATIN [Suspect]
     Active Substance: CARBOPLATIN
     Dosage: 500 MILLIGRAM/SQ. METER (ONCE IN 3 WEEKS)
     Route: 065
     Dates: start: 20230207
  4. PEMBROLIZUMAB [Suspect]
     Active Substance: PEMBROLIZUMAB
     Indication: Lung neoplasm malignant
     Dosage: 200 MILLIGRAM (3 WEEKS)
     Route: 042
     Dates: start: 20230207, end: 20230301
  5. PEMBROLIZUMAB [Suspect]
     Active Substance: PEMBROLIZUMAB
     Dosage: 200 MILLIGRAM (3 WEEKS)
     Route: 042
     Dates: start: 20230207, end: 20230412

REACTIONS (9)
  - Immune-mediated hepatitis [Not Recovered/Not Resolved]
  - Leukopenia [Not Recovered/Not Resolved]
  - Constipation [Not Recovered/Not Resolved]
  - Dysgeusia [Not Recovered/Not Resolved]
  - Nausea [Recovered/Resolved]
  - Night sweats [Not Recovered/Not Resolved]
  - Proctitis [Not Recovered/Not Resolved]
  - Fatigue [Not Recovered/Not Resolved]
  - Arthralgia [Recovered/Resolved]

NARRATIVE: CASE EVENT DATE: 20230101
